FAERS Safety Report 13943448 (Version 1)
Quarter: 2017Q3

REPORT INFORMATION
  Report Type: Other
  Country: RS (occurrence: RS)
  Receive Date: 20170907
  Receipt Date: 20170907
  Transmission Date: 20171128
  Serious: Yes (Death, Hospitalization)
  Sender: FDA-Public Use
  Company Number: RS-B. BRAUN MEDICAL INC.-2025644

PATIENT
  Age: 14 Year
  Sex: Female

DRUGS (11)
  1. CEFTRIAXONE. [Suspect]
     Active Substance: CEFTRIAXONE
  2. MORPHINE SULFATE. [Concomitant]
     Active Substance: MORPHINE SULFATE
  3. VANCOMYCIN HYDROCHLORIDE. [Suspect]
     Active Substance: VANCOMYCIN HYDROCHLORIDE
  4. IMMUNOGLOBULIN (IVIG) [Suspect]
     Active Substance: HUMAN IMMUNOGLOBULIN G
  5. METRONIDAZOLE. [Suspect]
     Active Substance: METRONIDAZOLE
  6. AMIKACIN SULFATE. [Concomitant]
     Active Substance: AMIKACIN SULFATE
  7. RANITIDINE. [Concomitant]
     Active Substance: RANITIDINE
  8. FLUCONAZOLE. [Suspect]
     Active Substance: FLUCONAZOLE
  9. AMPICILLIN (AMPICILLIN SODIUM) [Concomitant]
     Active Substance: AMPICILLIN SODIUM
  10. MEROPENEM. [Suspect]
     Active Substance: MEROPENEM
  11. METHYLPREDNISOLONE. [Suspect]
     Active Substance: METHYLPREDNISOLONE
     Route: 042

REACTIONS (1)
  - Toxic epidermal necrolysis [Fatal]
